FAERS Safety Report 9902142 (Version 1)
Quarter: 2014Q1

REPORT INFORMATION
  Report Type: Spontaneous
  Country: GB (occurrence: GB)
  Receive Date: 20140217
  Receipt Date: 20140217
  Transmission Date: 20141002
  Serious: Yes (Other)
  Sender: FDA-Public Use
  Company Number: GB-ROCHE-1350597

PATIENT
  Age: 58 Year
  Sex: Female

DRUGS (2)
  1. TRASTUZUMAB [Suspect]
     Indication: BREAST CANCER
     Route: 065
  2. VINORELBINE [Suspect]
     Indication: BREAST CANCER
     Route: 065

REACTIONS (1)
  - Metastases to liver [Recovering/Resolving]
